FAERS Safety Report 21832228 (Version 1)
Quarter: 2023Q1

REPORT INFORMATION
  Report Type: Spontaneous
  Country: US (occurrence: US)
  Receive Date: 20230106
  Receipt Date: 20230106
  Transmission Date: 20230418
  Serious: No
  Sender: FDA-Public Use
  Company Number: US-MYLANLABS-2022M1145739

PATIENT
  Sex: Female
  Weight: 122 kg

DRUGS (1)
  1. SEMGLEE (INSULIN GLARGINE-YFGN) [Suspect]
     Active Substance: INSULIN GLARGINE-YFGN
     Indication: Diabetes mellitus
     Dosage: 45 INTERNATIONAL UNIT, BID (45 UNITS TWICE A DAY TOTAL OF 90 UNITS)
     Route: 058
     Dates: start: 202212

REACTIONS (2)
  - Off label use [Unknown]
  - Device mechanical issue [Unknown]
